FAERS Safety Report 10874915 (Version 1)
Quarter: 2015Q1

REPORT INFORMATION
  Report Type: Spontaneous
  Country: US (occurrence: US)
  Receive Date: 20150227
  Receipt Date: 20150227
  Transmission Date: 20150721
  Serious: No
  Sender: FDA-Public Use
  Company Number: US-ASTRAZENECA-2015SE11419

PATIENT
  Age: 750 Month
  Sex: Female
  Weight: 78 kg

DRUGS (1)
  1. ONGLYZA [Suspect]
     Active Substance: SAXAGLIPTIN HYDROCHLORIDE
     Indication: TYPE 2 DIABETES MELLITUS
     Route: 048

REACTIONS (3)
  - Upper respiratory tract infection [Recovering/Resolving]
  - Pain of skin [Unknown]
  - Urticaria [Unknown]

NARRATIVE: CASE EVENT DATE: 201501
